FAERS Safety Report 13274471 (Version 1)
Quarter: 2017Q1

REPORT INFORMATION
  Report Type: Spontaneous
  Country: SY (occurrence: SY)
  Receive Date: 20170227
  Receipt Date: 20170227
  Transmission Date: 20170428
  Serious: Yes (Life-Threatening, Hospitalization, Other)
  Sender: FDA-Public Use
  Company Number: SY-MYLANLABS-2017M1011544

PATIENT

DRUGS (2)
  1. LIDOCAINE. [Suspect]
     Active Substance: LIDOCAINE
     Indication: LOCAL ANAESTHESIA
     Dosage: 1.5 ML OF 2 % LIDOCAINE (THE TOTAL DOSE WAS 30 MG)
     Route: 013
  2. EPINEPHRINE. [Suspect]
     Active Substance: EPINEPHRINE
     Indication: LOCAL ANAESTHESIA
     Dosage: 1:100000
     Route: 013

REACTIONS (3)
  - Drug administered at inappropriate site [Recovered/Resolved]
  - Coma [Recovered/Resolved]
  - Generalised tonic-clonic seizure [Recovered/Resolved]
